FAERS Safety Report 7205603-7 (Version None)
Quarter: 2010Q4

REPORT INFORMATION
  Report Type: 
  Country: None (occurrence: None)
  Receive Date: 20101231
  Receipt Date: 20101224
  Transmission Date: 20110411
  Serious: Yes (Death, Life-Threatening, Hospitalization)
  Sender: FDA-Public Use
  Company Number: TR-NOVOPROD-319447

PATIENT
  Age: 56 Year
  Sex: Male
  Weight: 76 kg

DRUGS (1)
  1. NOVOSEVEN [Suspect]
     Indication: HAEMOPHILIA B WITH ANTI FACTOR IX

REACTIONS (1)
  - SHOCK HAEMORRHAGIC [None]
